FAERS Safety Report 16840174 (Version 1)
Quarter: 2019Q3

REPORT INFORMATION
  Report Type: Spontaneous
  Country: US (occurrence: US)
  Receive Date: 20190801
  Receipt Date: 20190801
  Transmission Date: 20191005
  Serious: No
  Sender: FDA-Public Use
  Company Number: None

PATIENT
  Age: 34 Year
  Sex: Female

DRUGS (1)
  1. HYDROXYPROG (1ML )SDV [Suspect]
     Active Substance: HYDROXYPROGESTERONE
     Dates: start: 201907

REACTIONS (3)
  - Injection site pain [None]
  - Chest discomfort [None]
  - Nausea [None]

NARRATIVE: CASE EVENT DATE: 20190801
